FAERS Safety Report 5798688-6 (Version None)
Quarter: 2008Q2

REPORT INFORMATION
  Report Type: 
  Country: None (occurrence: None)
  Receive Date: 20080630
  Receipt Date: 20080618
  Transmission Date: 20081010
  Serious: Yes (Hospitalization)
  Sender: FDA-Public Use
  Company Number: 2008-02252

PATIENT
  Age: 77 Year
  Sex: Male
  Weight: 87 kg

DRUGS (4)
  1. VELCADE [Suspect]
     Indication: MANTLE CELL LYMPHOMA
     Dosage: 2.6 MG, INTRAVENOUS
     Route: 042
     Dates: start: 20080505, end: 20080515
  2. DOXORUBICIN HCL [Suspect]
     Indication: MANTLE CELL LYMPHOMA
     Dosage: 18 MG, INTRAVENOUS
     Route: 042
     Dates: start: 20080505, end: 20080507
  3. MABTHERA(RITUXIMAB) INJECTION [Suspect]
     Indication: MANTLE CELL LYMPHOMA
     Dosage: 750 MG, INTRAVENOUS
     Route: 042
     Dates: start: 20080505, end: 20080505
  4. CHLORAMBUCIL(CHLORAMBUCIL) OR [Suspect]
     Indication: MANTLE CELL LYMPHOMA
     Dosage: 12 MG, ORAL
     Route: 048
     Dates: start: 20080525

REACTIONS (2)
  - EXTRAVASATION [None]
  - SKIN INFLAMMATION [None]
